FAERS Safety Report 4333252-7 (Version None)
Quarter: 2004Q2

REPORT INFORMATION
  Report Type: 
  Country: None (occurrence: None)
  Receive Date: 20040405
  Receipt Date: 20040405
  Transmission Date: 20050107
  Serious: Yes (Hospitalization)
  Sender: FDA-Public Use
  Company Number: None

PATIENT
  Age: 25 Year
  Sex: Male
  Weight: 93.441 kg

DRUGS (1)
  1. CIPRO [Suspect]
     Indication: PROSTATITIS
     Dosage: 500 MG TWICE DAIL ORAL
     Route: 048
     Dates: start: 20040315, end: 20040401

REACTIONS (3)
  - ANXIETY [None]
  - HALLUCINATION [None]
  - IMPAIRED WORK ABILITY [None]
